FAERS Safety Report 21712506 (Version 1)
Quarter: 2022Q4

REPORT INFORMATION
  Report Type: Report from Study
  Country: GB (occurrence: GB)
  Receive Date: 20221212
  Receipt Date: 20221212
  Transmission Date: 20230112
  Serious: Yes (Other)
  Sender: FDA-Public Use
  Company Number: GB-SAMSUNG BIOEPIS-SB-2022-26025

PATIENT
  Age: 74 Year
  Sex: Female

DRUGS (1)
  1. ETANERCEPT [Suspect]
     Active Substance: ETANERCEPT
     Indication: Rheumatoid arthritis
     Route: 058
     Dates: start: 20221003

REACTIONS (9)
  - Musculoskeletal chest pain [Unknown]
  - Eye pain [Unknown]
  - Visual impairment [Unknown]
  - Headache [Unknown]
  - Myalgia [Not Recovered/Not Resolved]
  - Fatigue [Not Recovered/Not Resolved]
  - Anger [Unknown]
  - Depressed mood [Unknown]
  - Neuropathy peripheral [Unknown]
